FAERS Safety Report 7123838-9 (Version None)
Quarter: 2010Q4

REPORT INFORMATION
  Report Type: 
  Country: None (occurrence: None)
  Receive Date: 20101125
  Receipt Date: 20101118
  Transmission Date: 20110411
  Serious: Yes (Death)
  Sender: FDA-Public Use
  Company Number: PHHY2010JP78590

PATIENT
  Sex: Female

DRUGS (8)
  1. ZOLEDRONATE T29581+ [Suspect]
     Indication: METASTASES TO BONE
     Dosage: 4 MG EVERY 4 WEEKS
     Route: 041
     Dates: start: 20070718, end: 20100224
  2. FEMARA [Concomitant]
     Indication: BREAST CANCER
     Dosage: 2.5 MG
     Route: 048
     Dates: start: 20070718, end: 20080624
  3. LOXONIN [Concomitant]
     Indication: METASTASES TO BONE
     Dosage: 180 MG
     Route: 048
     Dates: start: 20070805, end: 20070914
  4. AROMASIN [Concomitant]
     Indication: BREAST CANCER
     Dosage: 25 MG
     Route: 048
     Dates: start: 20080625, end: 20080718
  5. XELODA [Concomitant]
     Indication: BREAST CANCER
     Dosage: 2400 MG
     Route: 048
     Dates: start: 20080827
  6. TAXOL [Concomitant]
     Indication: BREAST CANCER
     Dosage: 118 MG
     Dates: start: 20080827
  7. TOREMIFENE [Concomitant]
     Indication: BREAST CANCER
     Dosage: 120 MG
     Route: 048
     Dates: start: 20091202
  8. NAVELBINE [Concomitant]
     Dosage: 30 MG
     Dates: start: 20100120

REACTIONS (2)
  - DEATH [None]
  - HYPOCALCAEMIA [None]
